FAERS Safety Report 16043666 (Version 2)
Quarter: 2019Q1

REPORT INFORMATION
  Report Type: Spontaneous
  Country: US (occurrence: US)
  Receive Date: 20190306
  Receipt Date: 20190319
  Transmission Date: 20190418
  Serious: No
  Sender: FDA-Public Use
  Company Number: PHEH2019US009241

PATIENT
  Age: 10 Year
  Sex: Female

DRUGS (2)
  1. ILARIS [Suspect]
     Active Substance: CANAKINUMAB
     Indication: PRODUCT USED FOR UNKNOWN INDICATION
     Dosage: 60 MG, UNK
     Route: 065
     Dates: start: 201803
  2. ILARIS [Suspect]
     Active Substance: CANAKINUMAB
     Dosage: 60 MG, UNK
     Route: 058
     Dates: start: 20190207, end: 20190221

REACTIONS (4)
  - Neuralgia [Recovered/Resolved]
  - Gastrointestinal motility disorder [Unknown]
  - Gastrointestinal disorder [Recovered/Resolved]
  - Neck pain [Recovered/Resolved]

NARRATIVE: CASE EVENT DATE: 20180701
